FAERS Safety Report 21269931 (Version 5)
Quarter: 2022Q4

REPORT INFORMATION
  Report Type: Spontaneous
  Country: AU (occurrence: AU)
  Receive Date: 20220830
  Receipt Date: 20221026
  Transmission Date: 20230112
  Serious: Yes (Other)
  Sender: FDA-Public Use
  Company Number: AU-GLAXOSMITHKLINE-AU2022APC122986

PATIENT

DRUGS (2)
  1. ALBUTEROL SULFATE [Suspect]
     Active Substance: ALBUTEROL SULFATE
     Indication: Product used for unknown indication
     Dosage: UNK 100 MCG, 200 DOSES
     Route: 055
  2. ALBUTEROL SULFATE [Suspect]
     Active Substance: ALBUTEROL SULFATE
     Indication: Product used for unknown indication
     Dosage: UNK 100 MCG, 200 DOSES
     Route: 055

REACTIONS (5)
  - Near death experience [Unknown]
  - Asthma [Recovered/Resolved]
  - Product dose omission issue [Unknown]
  - Product delivery mechanism issue [Unknown]
  - Product complaint [Unknown]
